FAERS Safety Report 4596205-X (Version None)
Quarter: 2005Q1

REPORT INFORMATION
  Report Type: 
  Country: None (occurrence: None)
  Receive Date: 20050228
  Receipt Date: 20050228
  Transmission Date: 20050727
  Serious: Yes (Hospitalization)
  Sender: FDA-Public Use
  Company Number: None

PATIENT
  Age: 54 Year
  Sex: Female
  Weight: 64.8644 kg

DRUGS (1)
  1. CISPLATIN [Suspect]
     Indication: NASOPHARYNGEAL CANCER
     Dosage: 100 MG/M2 IV
     Route: 042
     Dates: start: 20041222

REACTIONS (9)
  - INFECTION [None]
  - LISTLESS [None]
  - MENTAL STATUS CHANGES [None]
  - METABOLIC DISORDER [None]
  - MIGRATION OF IMPLANT [None]
  - ORAL CANDIDIASIS [None]
  - ORAL INTAKE REDUCED [None]
  - PNEUMONIA [None]
  - SOMNOLENCE [None]
